FAERS Safety Report 23391114 (Version 1)
Quarter: 2024Q1

REPORT INFORMATION
  Report Type: Spontaneous
  Country: FR (occurrence: FR)
  Receive Date: 20240111
  Receipt Date: 20240111
  Transmission Date: 20240410
  Serious: Yes (Hospitalization)
  Sender: FDA-Public Use
  Company Number: None

PATIENT
  Age: 74 Year
  Sex: Male
  Weight: 75 kg

DRUGS (4)
  1. XARELTO [Interacting]
     Active Substance: RIVAROXABAN
     Indication: Product used for unknown indication
     Dosage: 20 MG, QD
     Route: 048
     Dates: start: 20231218, end: 20231224
  2. LOVENOX [Suspect]
     Active Substance: ENOXAPARIN SODIUM
     Indication: Peripheral ischaemia
     Route: 058
     Dates: start: 20231222, end: 20231224
  3. ASPIRIN\CLOPIDOGREL [Suspect]
     Active Substance: ASPIRIN\CLOPIDOGREL
     Indication: Peripheral ischaemia
     Route: 048
     Dates: start: 20231218
  4. HEPARIN SODIUM [Concomitant]
     Active Substance: HEPARIN SODIUM
     Indication: Peripheral ischaemia
     Route: 042
     Dates: start: 20231218, end: 20231222

REACTIONS (5)
  - Wound haemorrhage [Not Recovered/Not Resolved]
  - Therapeutic drug monitoring analysis incorrectly performed [Recovered/Resolved]
  - Labelled drug-drug interaction medication error [Recovered/Resolved]
  - Product prescribing error [Recovered/Resolved]
  - Product communication issue [Recovered/Resolved]

NARRATIVE: CASE EVENT DATE: 20231218
